FAERS Safety Report 16298007 (Version 2)
Quarter: 2019Q4

REPORT INFORMATION
  Report Type: Spontaneous
  Country: JP (occurrence: JP)
  Receive Date: 20190510
  Receipt Date: 20191009
  Transmission Date: 20200122
  Serious: Yes (Other)
  Sender: FDA-Public Use
  Company Number: JP-009507513-1905JPN000482J

PATIENT
  Age: 64 Year
  Sex: Male
  Weight: 56 kg

DRUGS (8)
  1. BIOFERMIN [Concomitant]
     Active Substance: DIETARY SUPPLEMENT\PROBIOTICS
     Indication: GASTROINTESTINAL DISORDER
     Dosage: 4 DOSAGE FORM, TID
     Route: 048
     Dates: start: 20190326, end: 20190912
  2. LITHIUM CARBONATE. [Suspect]
     Active Substance: LITHIUM CARBONATE
     Dosage: 400 MILLIGRAM, BID
     Route: 048
     Dates: start: 20190416, end: 20190426
  3. BELSOMRA [Suspect]
     Active Substance: SUVOREXANT
     Indication: INSOMNIA
     Dosage: 15 MILLIGRAM, QD
     Route: 048
     Dates: start: 20190425, end: 20190429
  4. LITHIUM CARBONATE. [Suspect]
     Active Substance: LITHIUM CARBONATE
     Dosage: 200 MILLIGRAM, TID
     Route: 048
     Dates: start: 20190404, end: 20190415
  5. LIMAS [Concomitant]
     Active Substance: LITHIUM CARBONATE
     Dosage: 600 MILLIGRAM
     Route: 048
  6. BROTIZOLAM [Suspect]
     Active Substance: BROTIZOLAM
     Indication: INSOMNIA
     Dosage: 0.25 MILLIGRAM, QD
     Route: 048
     Dates: start: 20190423, end: 20190424
  7. ZYPREXA [Suspect]
     Active Substance: OLANZAPINE
     Dosage: 10 MILLIGRAM, QD
     Route: 048
     Dates: start: 20190408, end: 20190429
  8. NITRAZEPAM [Concomitant]
     Active Substance: NITRAZEPAM
     Indication: INSOMNIA
     Dosage: 5 MILLIGRAM, QD
     Route: 048
     Dates: start: 20190328, end: 20190422

REACTIONS (7)
  - Tachycardia [Recovered/Resolved]
  - Hyperhidrosis [Recovered/Resolved]
  - Hallucination, visual [Recovered/Resolved]
  - Delirium [Recovered/Resolved]
  - Tremor [Recovered/Resolved]
  - Cold sweat [Recovered/Resolved]
  - Muscle contracture [Recovered/Resolved]

NARRATIVE: CASE EVENT DATE: 20190426
